FAERS Safety Report 7600316-1 (Version None)
Quarter: 2011Q2

REPORT INFORMATION
  Report Type: 
  Country: None (occurrence: None)
  Receive Date: 20110629
  Receipt Date: 20110614
  Transmission Date: 20111010
  Serious: Yes (Death, Hospitalization, Other)
  Sender: FDA-Public Use
  Company Number: US-2011-10325

PATIENT
  Age: 58 Year
  Sex: Male

DRUGS (14)
  1. ZYVOX [Concomitant]
  2. VFEND [Concomitant]
  3. BUSULFEX [Suspect]
     Indication: STEM CELL TRANSPLANT
     Dosage: 52 MG MILLIGRAM(S), QID, INTRAVENOUS
     Route: 042
     Dates: start: 20100707, end: 20100710
  4. MESNA [Concomitant]
  5. SANDIMMUNE [Concomitant]
  6. MAXIPIME [Concomitant]
  7. MEROPENEM [Concomitant]
  8. CYCLOSPORINE [Concomitant]
  9. NOVO HEPARIN (HEPARIN) [Concomitant]
  10. FUNGUARD (MICAFUNGIN SODIUM) [Concomitant]
  11. CYCLOPHOSPHAMIDE [Concomitant]
  12. THROMBOMODULIN ALFA (THROMBOMODULIN ALFA) [Concomitant]
  13. HANP (CARPERITIDE) [Concomitant]
  14. METHOTREXATE [Concomitant]

REACTIONS (8)
  - VENOOCCLUSIVE LIVER DISEASE [None]
  - SYSTEMIC CANDIDA [None]
  - CANDIDA SEPSIS [None]
  - CYTOMEGALOVIRUS TEST POSITIVE [None]
  - HISTIOCYTOSIS HAEMATOPHAGIC [None]
  - CYTOMEGALOVIRUS INFECTION [None]
  - HEPATIC FAILURE [None]
  - THROMBOTIC MICROANGIOPATHY [None]
